FAERS Safety Report 15384578 (Version 1)
Quarter: 2018Q3

REPORT INFORMATION
  Report Type: Report from Study
  Country: TW (occurrence: TW)
  Receive Date: 20180914
  Receipt Date: 20180914
  Transmission Date: 20181010
  Serious: Yes (Other)
  Sender: FDA-Public Use
  Company Number: TW-ROCHE-2183608

PATIENT
  Age: 59 Year
  Sex: Female
  Weight: 76 kg

DRUGS (4)
  1. ACETAMINOPHEN. [Concomitant]
     Active Substance: ACETAMINOPHEN
     Indication: PREMEDICATION
     Route: 048
     Dates: start: 20180702
  2. VENACALO?B6 [Concomitant]
     Active Substance: CALCIUM BROMIDE\DIPHENHYDRAMINE HYDROCHLORIDE\PYRIDOXINE HYDROCHLORIDE
     Indication: PREMEDICATION
     Route: 041
     Dates: start: 20180702
  3. ASPIRIN. [Concomitant]
     Active Substance: ASPIRIN
     Indication: HYPERTENSION
  4. HERCEPTIN [Suspect]
     Active Substance: TRASTUZUMAB
     Indication: BREAST CANCER
     Route: 041

REACTIONS (4)
  - Neutropenia [Recovering/Resolving]
  - Eosinophil count increased [Not Recovered/Not Resolved]
  - Diarrhoea [Recovered/Resolved]
  - Cellulitis [Unknown]

NARRATIVE: CASE EVENT DATE: 20171123
